FAERS Safety Report 5988989-0 (Version None)
Quarter: 2008Q4

REPORT INFORMATION
  Report Type: 
  Country: None (occurrence: None)
  Receive Date: 20081210
  Receipt Date: 20081205
  Transmission Date: 20090506
  Serious: Yes (Other)
  Sender: FDA-Public Use
  Company Number: A0759306A

PATIENT
  Age: 39 Year
  Sex: Male

DRUGS (4)
  1. PAXIL CR [Suspect]
     Indication: DEPRESSION
     Dosage: 20MG THREE TIMES PER DAY
     Route: 048
     Dates: start: 20020301, end: 20020901
  2. PAXIL [Suspect]
     Indication: DEPRESSION
     Dosage: 10MG TWICE PER DAY
     Route: 048
     Dates: start: 20081013
  3. AMBIEN [Concomitant]
  4. LEXAPRO [Concomitant]
     Dates: start: 20020101

REACTIONS (7)
  - AGGRESSION [None]
  - ANGER [None]
  - INSOMNIA [None]
  - MEDICATION ERROR [None]
  - NAUSEA [None]
  - SUICIDAL IDEATION [None]
  - WEIGHT DECREASED [None]
